FAERS Safety Report 14661554 (Version 2)
Quarter: 2018Q1

REPORT INFORMATION
  Report Type: Spontaneous
  Country: US (occurrence: US)
  Receive Date: 20180320
  Receipt Date: 20180329
  Transmission Date: 20180509
  Serious: No
  Sender: FDA-Public Use
  Company Number: US-ACTELION-A-US2018-169276

PATIENT
  Age: 9 Month
  Sex: Male

DRUGS (5)
  1. DIURIL [Concomitant]
     Active Substance: CHLOROTHIAZIDE
     Dosage: 85 MG, Q12HRS
  2. BUMEX [Concomitant]
     Active Substance: BUMETANIDE
     Dosage: 0.55 MG, UNK
  3. SILDENAFIL. [Concomitant]
     Active Substance: SILDENAFIL
     Indication: PULMONARY ARTERIAL HYPERTENSION
     Dosage: 5.5 MG, Q8H
  4. ALDACTONE [Concomitant]
     Active Substance: SPIRONOLACTONE
     Dosage: 4 MG, Q12HRS
  5. TRACLEER [Suspect]
     Active Substance: BOSENTAN
     Indication: PULMONARY ARTERIAL HYPERTENSION
     Dosage: 4.8 MG, BID
     Route: 048
     Dates: start: 20180214

REACTIONS (2)
  - No adverse event [Unknown]
  - Drug administered to patient of inappropriate age [Unknown]
